FAERS Safety Report 17835667 (Version 1)
Quarter: 2020Q2

REPORT INFORMATION
  Report Type: Report from Study
  Country: US (occurrence: US)
  Receive Date: 20200528
  Receipt Date: 20200528
  Transmission Date: 20200714
  Serious: No
  Sender: FDA-Public Use
  Company Number: US-CELGENEUS-USA-20200502349

PATIENT
  Age: 6 Decade
  Sex: Male

DRUGS (3)
  1. INREBIC [Suspect]
     Active Substance: FEDRATINIB HYDROCHLORIDE
     Dosage: 300 MILLIGRAM
     Route: 048
  2. INREBIC [Suspect]
     Active Substance: FEDRATINIB HYDROCHLORIDE
     Indication: MYELOFIBROSIS
     Dosage: 400 MILLIGRAM
     Route: 048
     Dates: start: 201912
  3. INREBIC [Suspect]
     Active Substance: FEDRATINIB HYDROCHLORIDE
     Dosage: 200 MILLIGRAM
     Route: 048
     Dates: end: 202002

REACTIONS (1)
  - Gastrointestinal disorder [Unknown]
